FAERS Safety Report 7957022-3 (Version None)
Quarter: 2011Q4

REPORT INFORMATION
  Report Type: 
  Country: None (occurrence: None)
  Receive Date: 20111205
  Receipt Date: 20111205
  Transmission Date: 20120403
  Serious: Yes (Other)
  Sender: FDA-Public Use
  Company Number: None

PATIENT
  Age: 48 Year
  Sex: Female
  Weight: 83.007 kg

DRUGS (3)
  1. LYRICA [Suspect]
     Indication: PERIODIC LIMB MOVEMENT DISORDER
     Dosage: 75 MG
     Route: 048
     Dates: start: 20110809, end: 20111203
  2. LYRICA [Suspect]
     Indication: RESTLESS LEGS SYNDROME
     Dosage: 75 MG
     Route: 048
     Dates: start: 20110809, end: 20111203
  3. CLONAZEPAM [Concomitant]
     Indication: BLEPHAROSPASM
     Dosage: 1.0 MG
     Route: 048
     Dates: start: 20110809, end: 20111203

REACTIONS (8)
  - SUICIDAL IDEATION [None]
  - MOOD SWINGS [None]
  - SOMNOLENCE [None]
  - DRUG INTERACTION [None]
  - THINKING ABNORMAL [None]
  - LETHARGY [None]
  - IMPAIRED WORK ABILITY [None]
  - DEPRESSION [None]
